FAERS Safety Report 16621746 (Version 1)
Quarter: 2019Q3

REPORT INFORMATION
  Report Type: Spontaneous
  Country: FR (occurrence: FR)
  Receive Date: 20190723
  Receipt Date: 20190723
  Transmission Date: 20191004
  Serious: Yes (Other)
  Sender: FDA-Public Use
  Company Number: FR-TEVA-2019-FR-1080963

PATIENT
  Age: 41 Year
  Sex: Male
  Weight: 82 kg

DRUGS (4)
  1. IFOSFAMIDE. [Suspect]
     Active Substance: IFOSFAMIDE
     Indication: EWING^S SARCOMA
     Dosage: 17760 MG
     Route: 041
     Dates: start: 20130126, end: 20130523
  2. VINCRISTINE (SULFATE DE) [Suspect]
     Active Substance: VINCRISTINE SULFATE
     Indication: EWING^S SARCOMA
     Dosage: 2 MG
     Route: 041
     Dates: start: 20130126, end: 20130521
  3. ETOPOSIDE. [Suspect]
     Active Substance: ETOPOSIDE
     Indication: EWING^S SARCOMA
     Dosage: 870 MG
     Route: 041
     Dates: start: 20130126, end: 20130523
  4. DOXORUBICINE [Suspect]
     Active Substance: DOXORUBICIN
     Indication: EWING^S SARCOMA
     Dosage: 118 MG
     Route: 041
     Dates: start: 20130126, end: 20130522

REACTIONS (2)
  - Pancytopenia [Recovered/Resolved]
  - Bicytopenia [Recovered/Resolved]

NARRATIVE: CASE EVENT DATE: 20130416
